APPROVED DRUG PRODUCT: CASSIPA
Active Ingredient: BUPRENORPHINE HYDROCHLORIDE; NALOXONE HYDROCHLORIDE
Strength: EQ 16MG BASE;EQ 4MG BASE
Dosage Form/Route: FILM;SUBLINGUAL
Application: N208042 | Product #001
Applicant: TEVA PHARMACEUTICALS USA INC
Approved: Sep 7, 2018 | RLD: Yes | RS: No | Type: DISCN